FAERS Safety Report 20180872 (Version 4)
Quarter: 2022Q4

REPORT INFORMATION
  Report Type: Report from Study
  Country: GB (occurrence: GB)
  Receive Date: 20211214
  Receipt Date: 20221003
  Transmission Date: 20230113
  Serious: Yes (Death, Other)
  Sender: FDA-Public Use
  Company Number: GB-NOVARTISPH-NVSC2021GB285355

PATIENT
  Age: 0 Year
  Sex: Female
  Weight: 5.4 kg

DRUGS (2)
  1. RYDAPT [Suspect]
     Active Substance: MIDOSTAURIN
     Indication: Systemic mastocytosis
     Dosage: UNK UNK, QD
     Route: 048
     Dates: start: 202109, end: 202111
  2. RYDAPT [Suspect]
     Active Substance: MIDOSTAURIN
     Dosage: 12.5 MG, QD (25 MG BD) OR (30-60MG/M2 DAILY)
     Route: 065

REACTIONS (4)
  - Pulmonary haemorrhage [Fatal]
  - Cardiac arrest [Unknown]
  - Respiratory failure [Unknown]
  - Hypersplenism [Unknown]

NARRATIVE: CASE EVENT DATE: 20210901
